FAERS Safety Report 7446118-0 (Version None)
Quarter: 2011Q2

REPORT INFORMATION
  Report Type: 
  Country: None (occurrence: None)
  Receive Date: 20110429
  Receipt Date: 20110408
  Transmission Date: 20111010
  Serious: Yes (Hospitalization)
  Sender: FDA-Public Use
  Company Number: A0921360A

PATIENT
  Age: 68 Year
  Sex: Female

DRUGS (19)
  1. ATORVASTATIN [Concomitant]
  2. BUDESONIDE [Concomitant]
  3. COLACE [Concomitant]
  4. FERROUS SULFATE TAB [Concomitant]
  5. CORTICOSTEROIDS [Concomitant]
  6. LASIX [Concomitant]
  7. NORVASC [Concomitant]
  8. PROMACTA [Suspect]
     Indication: IDIOPATHIC THROMBOCYTOPENIC PURPURA
     Dates: start: 20101210
  9. PAROXETINE HCL [Concomitant]
  10. COD LIVER OIL [Concomitant]
  11. METOPROLOL [Concomitant]
  12. MONTELUKAST [Concomitant]
  13. ASPIRIN [Concomitant]
  14. ATROVENT [Concomitant]
  15. ALBUTEROL [Concomitant]
  16. PREDNISONE [Concomitant]
  17. CALCIUM + VITAMIN D [Concomitant]
  18. ISOSORBIDE MONONITRATE [Concomitant]
  19. LEVOTHYROXINE SODIUM [Concomitant]

REACTIONS (7)
  - STENT PLACEMENT [None]
  - TACHYCARDIA [None]
  - FLANK PAIN [None]
  - THROMBOSIS [None]
  - RENAL ISCHAEMIA [None]
  - RENAL INFARCT [None]
  - ABDOMINAL PAIN [None]
